FAERS Safety Report 8619046-2 (Version None)
Quarter: 2012Q3

REPORT INFORMATION
  Report Type: 
  Country: None (occurrence: None)
  Receive Date: 20120824
  Receipt Date: 20120824
  Transmission Date: 20120928
  Serious: Yes (Hospitalization)
  Sender: FDA-Public Use
  Company Number: SG-BAYER-2012-087557

PATIENT
  Age: 37 Year
  Sex: Female

DRUGS (3)
  1. CIPROFLOXACIN HCL [Suspect]
  2. OFLOXACIN [Suspect]
  3. AMOXICILLIN [Suspect]

REACTIONS (3)
  - RASH [None]
  - OEDEMA PERIPHERAL [None]
  - PYREXIA [None]
